FAERS Safety Report 16707787 (Version 1)
Quarter: 2019Q3

REPORT INFORMATION
  Report Type: Spontaneous
  Country: US (occurrence: US)
  Receive Date: 20190815
  Receipt Date: 20190815
  Transmission Date: 20191004
  Serious: Yes (Hospitalization, Other)
  Sender: FDA-Public Use
  Company Number: US-PFIZER INC-2019345538

PATIENT
  Age: 86 Year
  Sex: Female
  Weight: 85.28 kg

DRUGS (4)
  1. SILDENAFIL CITRATE. [Suspect]
     Active Substance: SILDENAFIL CITRATE
     Dosage: 40 MG, 3X/DAY (TWO 20 MG TABLETS THREE TIMES A DAY)
     Route: 048
     Dates: start: 20190610
  2. REVATIO [Concomitant]
     Active Substance: SILDENAFIL CITRATE
     Dosage: UNK
  3. SILDENAFIL CITRATE. [Suspect]
     Active Substance: SILDENAFIL CITRATE
     Indication: PULMONARY HYPERTENSION
     Dosage: 20 MG, 3X/DAY (ONE 20 MG TABLET 3 TIMES A DAY)
     Route: 048
  4. SILDENAFIL CITRATE. [Suspect]
     Active Substance: SILDENAFIL CITRATE
     Dosage: UNK (HAS INCREASED HER DOSAGE)

REACTIONS (6)
  - Hyperchloraemia [Unknown]
  - Hypertension [Unknown]
  - Encephalopathy [Unknown]
  - Right ventricular failure [Unknown]
  - Oedema [Unknown]
  - Product use issue [Unknown]
